FAERS Safety Report 15136531 (Version 1)
Quarter: 2018Q3

REPORT INFORMATION
  Report Type: Spontaneous
  Country: US (occurrence: US)
  Receive Date: 20180618
  Receipt Date: 20180618
  Transmission Date: 20181010
  Serious: Yes (Hospitalization)
  Sender: FDA-Public Use
  Company Number: None

PATIENT
  Age: 47 Year
  Sex: Male

DRUGS (2)
  1. DAPTOMYCIN. [Suspect]
     Active Substance: DAPTOMYCIN
     Indication: OSTEOMYELITIS
     Dates: start: 20180516, end: 20180522
  2. SIMVASTATIN. [Suspect]
     Active Substance: SIMVASTATIN
     Dates: start: 20071201, end: 20180522

REACTIONS (5)
  - Aspartate aminotransferase increased [None]
  - Arthralgia [None]
  - Blood creatine phosphokinase increased [None]
  - Myalgia [None]
  - Alanine aminotransferase increased [None]

NARRATIVE: CASE EVENT DATE: 20180522
